FAERS Safety Report 23462785 (Version 1)
Quarter: 2024Q1

REPORT INFORMATION
  Report Type: Spontaneous
  Country: PL (occurrence: PL)
  Receive Date: 20240131
  Receipt Date: 20240131
  Transmission Date: 20240410
  Serious: Yes (Hospitalization, Other)
  Sender: FDA-Public Use
  Company Number: PL-NOVOPROD-1161691

PATIENT
  Age: 33 Year
  Sex: Male
  Weight: 150 kg

DRUGS (4)
  1. METFORMIN [Suspect]
     Active Substance: METFORMIN HYDROCHLORIDE
     Indication: Type 2 diabetes mellitus
     Dosage: 1000 MG, BID (0 - 0-2 TABLETS)
     Route: 048
  2. INSULIN LISPRO [Suspect]
     Active Substance: INSULIN LISPRO
     Indication: Type 2 diabetes mellitus
     Dosage: 108 INTERNATIONAL UNIT, QD, 36 IU, TID
     Route: 065
  3. INSULIN HUMAN [Suspect]
     Active Substance: INSULIN HUMAN
     Indication: Type 2 diabetes mellitus
     Dosage: 40 INTERNATIONAL UNIT, QD
     Route: 058
  4. EMPAGLIFLOZIN [Suspect]
     Active Substance: EMPAGLIFLOZIN
     Indication: Type 2 diabetes mellitus
     Dosage: 10 MILLIGRAM, QD
     Route: 048

REACTIONS (4)
  - Diabetic foot [Unknown]
  - Condition aggravated [Unknown]
  - Insulin resistance [Recovered/Resolved]
  - Blood glucose abnormal [Unknown]
